FAERS Safety Report 11852213 (Version 1)
Quarter: 2015Q4

REPORT INFORMATION
  Report Type: Spontaneous
  Country: SE (occurrence: SE)
  Receive Date: 20151218
  Receipt Date: 20151218
  Transmission Date: 20160305
  Serious: Yes (Hospitalization, Other)
  Sender: FDA-Public Use
  Company Number: SE-009507513-0909SWE00004

PATIENT
  Age: 33 Year
  Sex: Female

DRUGS (4)
  1. EFAVIRENZ [Interacting]
     Active Substance: EFAVIRENZ
     Indication: ANTIVIRAL TREATMENT
     Route: 048
  2. KIVEXA [Suspect]
     Active Substance: ABACAVIR SULFATE\LAMIVUDINE
     Indication: ANTIVIRAL TREATMENT
     Route: 048
  3. DEPO-PROVERA [Interacting]
     Active Substance: MEDROXYPROGESTERONE ACETATE
     Indication: CONTRACEPTION
     Dosage: 150 MG/ML, UNK
     Route: 065
     Dates: start: 20080422, end: 200905
  4. IMPLANON [Interacting]
     Active Substance: ETONOGESTREL
     Indication: CONTRACEPTION
     Dosage: UNK MG, UNK
     Route: 065
     Dates: start: 20060124, end: 20080422

REACTIONS (3)
  - Pregnancy on contraceptive [Recovered/Resolved]
  - Drug interaction [Recovered/Resolved]
  - Pregnancy on contraceptive [Recovered/Resolved]

NARRATIVE: CASE EVENT DATE: 20080407
